FAERS Safety Report 7080453-3 (Version None)
Quarter: 2010Q4

REPORT INFORMATION
  Report Type: 
  Country: None (occurrence: None)
  Receive Date: 20101103
  Receipt Date: 20101019
  Transmission Date: 20110411
  Serious: Yes (Other)
  Sender: FDA-Public Use
  Company Number: US-BAYER-201015456NA

PATIENT
  Age: 39 Year
  Sex: Female
  Weight: 53 kg

DRUGS (1)
  1. YAZ [Suspect]
     Indication: CONTRACEPTION
     Dosage: ACCORDING TO PHARMACY RECORDS, YAZ WAS FILLED FROM 23-FEB-2007 TO 16-NOV-2008
     Route: 048
     Dates: start: 20070223, end: 20090101

REACTIONS (4)
  - DEEP VEIN THROMBOSIS [None]
  - ERYTHEMA [None]
  - PAIN IN EXTREMITY [None]
  - PHLEBITIS [None]
